FAERS Safety Report 4861622-7 (Version None)
Quarter: 2005Q4

REPORT INFORMATION
  Report Type: 
  Country: None (occurrence: None)
  Receive Date: 20051216
  Receipt Date: 20051206
  Transmission Date: 20060501
  Serious: Yes (Hospitalization, Other)
  Sender: FDA-Public Use
  Company Number: 2005165184

PATIENT
  Age: 52 Year
  Sex: Female
  Weight: 49.8957 kg

DRUGS (6)
  1. NEURONTIN [Suspect]
     Indication: ARTHRALGIA
     Dates: end: 20050916
  2. NEURONTIN [Suspect]
     Indication: SYSTEMIC LUPUS ERYTHEMATOSUS
     Dates: end: 20050916
  3. LYRICA [Suspect]
     Indication: ARTHRALGIA
     Dosage: 150 MG (50 MG, 3 IN 1 D), ORAL
     Route: 048
     Dates: start: 20050916
  4. LYRICA [Suspect]
     Indication: SYSTEMIC LUPUS ERYTHEMATOSUS
     Dosage: 150 MG (50 MG, 3 IN 1 D), ORAL
     Route: 048
     Dates: start: 20050916
  5. PERCOCET [Concomitant]
  6. PROTONIX [Concomitant]

REACTIONS (6)
  - CONDITION AGGRAVATED [None]
  - DEPRESSION [None]
  - DRUG EFFECT DECREASED [None]
  - DRUG INEFFECTIVE [None]
  - SYSTEMIC LUPUS ERYTHEMATOSUS [None]
  - UNEVALUABLE EVENT [None]
